FAERS Safety Report 24327309 (Version 2)
Quarter: 2024Q4

REPORT INFORMATION
  Report Type: Spontaneous
  Country: IL (occurrence: IL)
  Receive Date: 20240917
  Receipt Date: 20241125
  Transmission Date: 20250114
  Serious: No
  Sender: PFIZER
  Company Number: IL-PFIZER INC-PV202400088645

PATIENT
  Age: 10 Year
  Sex: Female

DRUGS (1)
  1. NGENLA [Suspect]
     Active Substance: SOMATROGON-GHLA
     Dosage: 23 MG, WEEKLY
     Route: 058
     Dates: start: 20240704

REACTIONS (1)
  - Injection site pain [Recovering/Resolving]
